FAERS Safety Report 9010687 (Version 1)
Quarter: 2013Q1

REPORT INFORMATION
  Report Type: Spontaneous
  Country: US (occurrence: US)
  Receive Date: 20130109
  Receipt Date: 20130109
  Transmission Date: 20140127
  Serious: Yes (Death)
  Sender: FDA-Public Use
  Company Number: US-PFIZER INC-2013004343

PATIENT
  Age: 49 Year
  Sex: Male

DRUGS (5)
  1. ALPRAZOLAM [Suspect]
     Dosage: UNK
     Route: 048
  2. TRAMADOL [Suspect]
     Dosage: UNK
     Route: 048
  3. CITALOPRAM [Suspect]
     Dosage: UNK
     Route: 048
  4. CYCLOBENZAPRINE [Suspect]
     Dosage: UNK
     Route: 048
  5. ZOLPIDEM TARTRATE [Suspect]
     Dosage: UNK
     Route: 048

REACTIONS (1)
  - Completed suicide [Fatal]
